FAERS Safety Report 6666800-2 (Version None)
Quarter: 2010Q2

REPORT INFORMATION
  Report Type: 
  Country: None (occurrence: None)
  Receive Date: 20100405
  Receipt Date: 20100323
  Transmission Date: 20101027
  Serious: Yes (Hospitalization)
  Sender: FDA-Public Use
  Company Number: US-JNJFOC-20090702854

PATIENT
  Age: 73 Year
  Sex: Female

DRUGS (7)
  1. LEVAQUIN [Suspect]
     Indication: OSTEOMYELITIS
     Route: 042
  2. FLOMAX [Concomitant]
     Indication: URINARY TRACT DISORDER
     Route: 065
  3. HYDROCHLOROTHIAZIDE [Concomitant]
     Indication: BLOOD PRESSURE
     Route: 065
  4. SYNTHROID [Concomitant]
     Indication: THYROID DISORDER
     Route: 065
  5. PRILOSEC [Concomitant]
     Indication: GASTROINTESTINAL DISORDER
     Route: 065
  6. ALDACTONE [Concomitant]
     Indication: BLOOD PRESSURE
     Route: 065
  7. VICODIN [Concomitant]
     Indication: PAIN
     Route: 065

REACTIONS (2)
  - BLOOD SODIUM DECREASED [None]
  - DELIRIUM [None]
